FAERS Safety Report 10196307 (Version 1)
Quarter: 2014Q2

REPORT INFORMATION
  Report Type: Report from Study
  Country: FR (occurrence: FR)
  Receive Date: 20140527
  Receipt Date: 20140527
  Transmission Date: 20141212
  Serious: Yes (Other)
  Sender: FDA-Public Use
  Company Number: FR-JNJFOC-20140511317

PATIENT
  Sex: 0

DRUGS (1)
  1. EPITOMAX [Suspect]
     Indication: PRODUCT USED FOR UNKNOWN INDICATION
     Route: 048

REACTIONS (6)
  - Morbid thoughts [Unknown]
  - Depression [Unknown]
  - Nausea [Unknown]
  - Vomiting [Unknown]
  - Suicidal ideation [Unknown]
  - Palpitations [Unknown]
